FAERS Safety Report 15775634 (Version 1)
Quarter: 2018Q4

REPORT INFORMATION
  Report Type: Spontaneous
  Country: US (occurrence: US)
  Receive Date: 20181207
  Receipt Date: 20181207
  Transmission Date: 20190205
  Serious: No
  Sender: FDA-Public Use
  Company Number: None

PATIENT
  Age: 33 Year
  Sex: Female
  Weight: 120.2 kg

DRUGS (1)
  1. TALTZ [Suspect]
     Active Substance: IXEKIZUMAB
     Indication: PSORIASIS
     Dosage: ?          OTHER FREQUENCY:WEEK 12 THEN EVERY 4 WEEKS AS DIRECTED?
     Route: 058
     Dates: start: 201803

REACTIONS (2)
  - Bacterial infection [None]
  - Therapy cessation [None]
